FAERS Safety Report 9272151 (Version 1)
Quarter: 2013Q2

REPORT INFORMATION
  Report Type: Spontaneous
  Country: US (occurrence: US)
  Receive Date: 20130506
  Receipt Date: 20130506
  Transmission Date: 20140414
  Serious: Yes (Other)
  Sender: FDA-Public Use
  Company Number: US-BAYER-2013-054348

PATIENT
  Age: 43 Year
  Sex: Female
  Weight: 71.2 kg

DRUGS (3)
  1. BEYAZ [Suspect]
  2. CALCIUM +VIT D [Concomitant]
     Dosage: UNK
     Route: 048
     Dates: start: 20040309, end: 20110104
  3. MULTIVITAMINS [Concomitant]
     Dosage: UNK
     Route: 048
     Dates: start: 20071226, end: 20110104

REACTIONS (1)
  - Thrombophlebitis superficial [None]
